FAERS Safety Report 6023491-1 (Version None)
Quarter: 2008Q4

REPORT INFORMATION
  Report Type: 
  Country: None (occurrence: None)
  Receive Date: 20081230
  Receipt Date: 20081216
  Transmission Date: 20090506
  Serious: Yes (Hospitalization)
  Sender: FDA-Public Use
  Company Number: IT-MERCK-0812ITA00023

PATIENT
  Age: 9 Year
  Sex: Female

DRUGS (4)
  1. SINGULAIR [Suspect]
     Indication: ASTHMA
     Route: 048
     Dates: start: 20060101, end: 20080101
  2. LEVOCETIRIZINE DIHYDROCHLORIDE [Concomitant]
     Indication: ASTHMA
     Route: 065
     Dates: end: 20080101
  3. CORTICOSTEROIDS (UNSPECIFIED) [Concomitant]
     Indication: ASTHMA
     Route: 065
     Dates: end: 20080101
  4. [THERAPY UNSPECIFIED] [Concomitant]
     Indication: ASTHMA
     Route: 065
     Dates: end: 20080101

REACTIONS (1)
  - GLOMERULONEPHRITIS [None]
